FAERS Safety Report 6256781-8 (Version None)
Quarter: 2009Q3

REPORT INFORMATION
  Report Type: 
  Country: None (occurrence: None)
  Receive Date: 20090701
  Receipt Date: 20090701
  Transmission Date: 20100115
  Serious: Yes (Other)
  Sender: FDA-Public Use
  Company Number: None

PATIENT
  Sex: Male
  Weight: 83.9154 kg

DRUGS (9)
  1. SOLARAZE [Suspect]
     Indication: PRECANCEROUS SKIN LESION
     Dosage: APPLY FACE, ARMS, HANDS DAILY TOP
     Route: 061
     Dates: start: 20081013, end: 20081123
  2. TRAZODONE HCL [Concomitant]
  3. DESONIDE [Concomitant]
  4. FLUOCINONIDE [Concomitant]
  5. PREDNISONE [Concomitant]
  6. TRIAMCINOLONE [Concomitant]
  7. METHOTREXATE [Concomitant]
  8. FOLLIC ACID [Concomitant]
  9. PLAQUENIL [Concomitant]

REACTIONS (2)
  - HYPERSENSITIVITY [None]
  - PHOTOSENSITIVITY REACTION [None]
